FAERS Safety Report 13456554 (Version 1)
Quarter: 2017Q2

REPORT INFORMATION
  Report Type: Other
  Country: DK (occurrence: DK)
  Receive Date: 20170419
  Receipt Date: 20170419
  Transmission Date: 20170830
  Serious: Yes (Hospitalization)
  Sender: FDA-Public Use
  Company Number: DK-CELLTRION HEALTHCARE HUNGARY KFT-2017DK004549

PATIENT

DRUGS (3)
  1. REMSIMA [Suspect]
     Active Substance: INFLIXIMAB
     Dosage: 310 MG, WEEKS 0, 2, 6, +8
     Route: 042
     Dates: start: 20170324, end: 20170324
  2. REMSIMA [Suspect]
     Active Substance: INFLIXIMAB
     Indication: SPONDYLOARTHROPATHY
     Dosage: 310 MG, WEEKS 0, 2, 6, +8
     Route: 042
     Dates: start: 20170308, end: 20170308
  3. IBUPROFEN. [Concomitant]
     Active Substance: IBUPROFEN
     Dosage: UNK
     Dates: start: 20161128, end: 20161212

REACTIONS (2)
  - Paraesthesia [Recovered/Resolved]
  - Sensation of foreign body [Recovered/Resolved]

NARRATIVE: CASE EVENT DATE: 20170308
